FAERS Safety Report 4499104-7 (Version None)
Quarter: 2004Q4

REPORT INFORMATION
  Report Type: 
  Country: None (occurrence: None)
  Receive Date: 20041111
  Receipt Date: 20041103
  Transmission Date: 20050328
  Serious: Yes (Life-Threatening, Hospitalization, Disabling)
  Sender: FDA-Public Use
  Company Number: US-MERCK-0411USA00615

PATIENT
  Age: 48 Year
  Sex: Female

DRUGS (8)
  1. VIOXX [Suspect]
     Indication: ARTHRITIS
     Route: 048
     Dates: start: 20010101, end: 20040930
  2. AVANDIA [Concomitant]
     Route: 065
  3. GLIPIZIDE [Concomitant]
     Route: 065
  4. HYZAAR [Concomitant]
     Route: 048
  5. EFFEXOR [Concomitant]
     Route: 065
  6. DETROL [Concomitant]
     Route: 065
  7. VALIUM [Concomitant]
     Route: 065
  8. CRESTOR [Concomitant]
     Route: 065

REACTIONS (3)
  - BLOOD GLUCOSE INCREASED [None]
  - HEADACHE [None]
  - MYOCARDIAL INFARCTION [None]
